FAERS Safety Report 19020954 (Version 3)
Quarter: 2021Q2

REPORT INFORMATION
  Report Type: Report from Study
  Country: FR (occurrence: FR)
  Receive Date: 20210317
  Receipt Date: 20210423
  Transmission Date: 20210717
  Serious: Yes (Hospitalization, Other)
  Sender: FDA-Public Use
  Company Number: FR-PFIZER INC-2021249194

PATIENT
  Age: 63 Year
  Sex: Female
  Weight: 98 kg

DRUGS (4)
  1. LOMUSTIN [Suspect]
     Active Substance: LOMUSTINE
  2. CYTARABINE. [Suspect]
     Active Substance: CYTARABINE
     Indication: ACUTE MYELOID LEUKAEMIA
     Dosage: 100 MG/M2, INDUCTION D2 TO D8
     Route: 042
     Dates: start: 20210123, end: 20210129
  3. DAUNORUBICIN [Suspect]
     Active Substance: DAUNORUBICIN
  4. BLINDED THERAPY [Suspect]
     Active Substance: INVESTIGATIONAL PRODUCT
     Indication: ACUTE MYELOID LEUKAEMIA

REACTIONS (3)
  - Myelosuppression [Unknown]
  - Hyperaemia [Unknown]
  - Fungal sepsis [Not Recovered/Not Resolved]

NARRATIVE: CASE EVENT DATE: 20210124
